FAERS Safety Report 10033888 (Version 1)
Quarter: 2014Q1

REPORT INFORMATION
  Report Type: Spontaneous
  Country: FR (occurrence: None)
  Receive Date: 20140320
  Receipt Date: 20140320
  Transmission Date: 20141002
  Serious: Yes (Other)
  Sender: FDA-Public Use
  Company Number: 2014-FR-000970

PATIENT
  Age: 6 Year
  Sex: Female
  Weight: 34.8 kg

DRUGS (1)
  1. ERWINAZE [Suspect]
     Indication: B-CELL TYPE ACUTE LEUKAEMIA
     Dosage: 11200 IU, BID, INTRAMUSCULAR
     Dates: start: 20131122, end: 20131122

REACTIONS (2)
  - Injection site pain [None]
  - Vomiting [None]
